FAERS Safety Report 6125594-X (Version None)
Quarter: 2009Q1

REPORT INFORMATION
  Report Type: 
  Country: None (occurrence: None)
  Receive Date: 20090319
  Receipt Date: 20090319
  Transmission Date: 20090719
  Serious: Yes (Other)
  Sender: FDA-Public Use
  Company Number: None

PATIENT
  Age: 39 Year
  Sex: Male
  Weight: 79.8 kg

DRUGS (1)
  1. OXALIPLATIN [Suspect]
     Indication: COLON CANCER
     Dosage: MG/METERS SQUARED EVERY 3 WEEKS IV
     Route: 042
     Dates: start: 20090106, end: 20090120

REACTIONS (1)
  - HEPATIC ENZYME INCREASED [None]
